FAERS Safety Report 10086847 (Version 1)
Quarter: 2014Q2

REPORT INFORMATION
  Report Type: Spontaneous
  Country: US (occurrence: US)
  Receive Date: 20140418
  Receipt Date: 20140418
  Transmission Date: 20141212
  Serious: Yes (Other)
  Sender: FDA-Public Use
  Company Number: US-TEVA-475868USA

PATIENT
  Sex: Male
  Weight: 77.18 kg

DRUGS (3)
  1. PROVIGIL [Suspect]
     Indication: FATIGUE
     Dosage: 100 MILLIGRAM DAILY;
     Route: 048
     Dates: start: 2000, end: 2008
  2. AVONEX [Suspect]
     Dates: end: 2008
  3. CELEBREX [Suspect]
     Dates: end: 2008

REACTIONS (10)
  - Renal failure [Unknown]
  - Nephrolithiasis [Unknown]
  - Blood urine present [Unknown]
  - Fatigue [Unknown]
  - Multiple sclerosis relapse [Unknown]
  - Hypokinesia [Unknown]
  - Headache [Unknown]
  - Pain [Unknown]
  - Photophobia [Unknown]
  - Hyperacusis [Unknown]
